FAERS Safety Report 17817664 (Version 1)
Quarter: 2020Q2

REPORT INFORMATION
  Report Type: Spontaneous
  Country: SE (occurrence: SE)
  Receive Date: 20200522
  Receipt Date: 20200522
  Transmission Date: 20200714
  Serious: Yes (Hospitalization)
  Sender: FDA-Public Use
  Company Number: SE-BAUSCH-BL-2020-014723

PATIENT
  Age: 60 Year
  Sex: Female

DRUGS (3)
  1. CLINDAMYCIN. [Suspect]
     Active Substance: CLINDAMYCIN
     Indication: BACTERIAL INFECTION
     Route: 065
  2. TREMFYA [Suspect]
     Active Substance: GUSELKUMAB
     Indication: PSORIASIS
  3. TREMFYA [Suspect]
     Active Substance: GUSELKUMAB
     Indication: BACTERIAL INFECTION
     Route: 065

REACTIONS (2)
  - Toxic skin eruption [Unknown]
  - Bacterial infection [Unknown]

NARRATIVE: CASE EVENT DATE: 201804
